FAERS Safety Report 13978384 (Version 6)
Quarter: 2018Q3

REPORT INFORMATION
  Report Type: Spontaneous
  Country: US (occurrence: US)
  Receive Date: 20170915
  Receipt Date: 20180720
  Transmission Date: 20181010
  Serious: Yes (Hospitalization)
  Sender: FDA-Public Use
  Company Number: US-ACTELION-A-US2017-159427

PATIENT
  Age: 77 Year
  Sex: Female
  Weight: 65.76 kg

DRUGS (31)
  1. BASAGLAR [Concomitant]
     Active Substance: INSULIN GLARGINE
  2. LINZESS [Concomitant]
     Active Substance: LINACLOTIDE
  3. POLYETHYLENE GLYCOL [Concomitant]
     Active Substance: POLYETHYLENE GLYCOLS
  4. PSYLLIUM HUSK. [Concomitant]
     Active Substance: PSYLLIUM HUSK
  5. GLUCOSAMINE [Concomitant]
     Active Substance: GLUCOSAMINE
  6. LACTULOSE. [Concomitant]
     Active Substance: LACTULOSE
  7. FUROSEMIDE. [Concomitant]
     Active Substance: FUROSEMIDE
  8. PROAIR HFA [Concomitant]
     Active Substance: ALBUTEROL SULFATE
  9. ROPINIROLE HCL [Concomitant]
     Active Substance: ROPINIROLE HYDROCHLORIDE
  10. SPIRONOLACTONE. [Concomitant]
     Active Substance: SPIRONOLACTONE
  11. ALLOPURINOL. [Concomitant]
     Active Substance: ALLOPURINOL
  12. ASCORBIC ACID. [Concomitant]
     Active Substance: ASCORBIC ACID
  13. IPRATROPIUM BROMIDE. [Concomitant]
     Active Substance: IPRATROPIUM BROMIDE
  14. LEVOTHYROXINE SODIUM. [Concomitant]
     Active Substance: LEVOTHYROXINE SODIUM
  15. ELIQUIS [Concomitant]
     Active Substance: APIXABAN
  16. BACTROBAN [Concomitant]
     Active Substance: MUPIROCIN\MUPIROCIN CALCIUM
  17. TRAMADOL HCL [Concomitant]
     Active Substance: TRAMADOL HYDROCHLORIDE
  18. VICTOZA [Concomitant]
     Active Substance: LIRAGLUTIDE
  19. TRACLEER [Suspect]
     Active Substance: BOSENTAN
     Indication: PULMONARY ARTERIAL HYPERTENSION
     Dosage: 125 MG, BID
     Route: 048
  20. SILDENAFIL. [Concomitant]
     Active Substance: SILDENAFIL
  21. FERROUS SULFATE. [Concomitant]
     Active Substance: FERROUS SULFATE
  22. DOCUSATE SODIUM AND SENNA [Concomitant]
     Active Substance: DOCUSATE SODIUM\SENNOSIDES
  23. FLUOXETINE HCL [Concomitant]
     Active Substance: FLUOXETINE HYDROCHLORIDE
  24. PROBIOTIC [Concomitant]
     Active Substance: PROBIOTICS NOS
  25. RESTASIS [Concomitant]
     Active Substance: CYCLOSPORINE
  26. GABAPENTIN. [Concomitant]
     Active Substance: GABAPENTIN
  27. OXYCODONE HYDROCHLORIDE. [Concomitant]
     Active Substance: OXYCODONE HYDROCHLORIDE
  28. SIMVASTATIN. [Concomitant]
     Active Substance: SIMVASTATIN
  29. SPIRIVA [Concomitant]
     Active Substance: TIOTROPIUM BROMIDE MONOHYDRATE
  30. VITAMIN B12 [Concomitant]
     Active Substance: CYANOCOBALAMIN
  31. VITAMIN B?6 [Concomitant]
     Active Substance: PYRIDOXINE

REACTIONS (7)
  - Unevaluable event [Unknown]
  - Gastrointestinal polyp haemorrhage [Unknown]
  - Haemorrhage [Unknown]
  - Swelling [Unknown]
  - Transfusion [Unknown]
  - Cardiac disorder [Recovered/Resolved]
  - Anaemia [Recovered/Resolved]

NARRATIVE: CASE EVENT DATE: 20180610
